FAERS Safety Report 20895319 (Version 1)
Quarter: 2022Q2

REPORT INFORMATION
  Report Type: Spontaneous
  Country: US (occurrence: None)
  Receive Date: 20220528
  Receipt Date: 20220528
  Transmission Date: 20220720
  Serious: Yes (Other)
  Sender: FDA-Public Use
  Company Number: None

PATIENT
  Age: 50 Year
  Sex: Female

DRUGS (2)
  1. BUPROPION HYDROCHLORIDE [Suspect]
     Active Substance: BUPROPION HYDROCHLORIDE
     Dates: start: 20220527
  2. LAMOTRIGINE [Suspect]
     Active Substance: LAMOTRIGINE
     Dates: start: 20220527

REACTIONS (6)
  - Headache [None]
  - Pyrexia [None]
  - Palpitations [None]
  - Pharyngeal swelling [None]
  - Speech disorder [None]
  - Drug hypersensitivity [None]

NARRATIVE: CASE EVENT DATE: 20220528
